FAERS Safety Report 24103472 (Version 1)
Quarter: 2024Q3

REPORT INFORMATION
  Report Type: Spontaneous
  Country: US (occurrence: US)
  Receive Date: 20240717
  Receipt Date: 20240717
  Transmission Date: 20241016
  Serious: No
  Sender: ELI LILLY AND CO
  Company Number: US-ELI_LILLY_AND_COMPANY-US202407008789

PATIENT
  Sex: Female

DRUGS (5)
  1. MOUNJARO [Suspect]
     Active Substance: TIRZEPATIDE
     Indication: Gestational diabetes
     Dosage: 2.5 MG, UNKNOWN
     Route: 065
     Dates: start: 20240312, end: 20240326
  2. MOUNJARO [Suspect]
     Active Substance: TIRZEPATIDE
     Indication: Gestational diabetes
     Dosage: 2.5 MG, UNKNOWN
     Route: 065
     Dates: start: 20240312, end: 20240326
  3. MOUNJARO [Suspect]
     Active Substance: TIRZEPATIDE
     Indication: Gestational diabetes
     Dosage: 2.5 MG, UNKNOWN
     Route: 065
     Dates: start: 20240312, end: 20240326
  4. MOUNJARO [Suspect]
     Active Substance: TIRZEPATIDE
     Indication: Gestational diabetes
     Dosage: 2.5 MG, UNKNOWN
     Route: 065
     Dates: start: 20240312, end: 20240326
  5. METFORMIN [Concomitant]
     Active Substance: METFORMIN HYDROCHLORIDE
     Indication: Product used for unknown indication

REACTIONS (4)
  - Maternal exposure during pregnancy [Unknown]
  - Vomiting [Recovered/Resolved]
  - Impaired gastric emptying [Recovered/Resolved]
  - Flatulence [Recovered/Resolved]

NARRATIVE: CASE EVENT DATE: 20240301
